FAERS Safety Report 9615724 (Version 2)
Quarter: 2013Q4

REPORT INFORMATION
  Report Type: Spontaneous
  Country: US (occurrence: US)
  Receive Date: 20131011
  Receipt Date: 20131011
  Transmission Date: 20140711
  Serious: No
  Sender: FDA-Public Use
  Company Number: US-PURDUE-USA-2013-0099181

PATIENT
  Age: 54 Year
  Sex: Female

DRUGS (5)
  1. BUTRANS [Suspect]
     Indication: PAIN
     Dosage: 5 MCG/HR, UNK
     Route: 062
     Dates: start: 201212, end: 201301
  2. LORTAB                             /00607101/ [Concomitant]
     Indication: PAIN
     Dosage: 10 MG, QID
     Route: 048
  3. SYNTHROID [Concomitant]
     Indication: THYROIDECTOMY
     Dosage: 1 TABLET, UNK
     Route: 048
  4. PRILOSEC                           /00661201/ [Concomitant]
     Indication: GASTROOESOPHAGEAL REFLUX DISEASE
     Dosage: 1 TABLET, DAILY
     Route: 048
  5. VALIUM                             /00017001/ [Concomitant]
     Indication: ANXIETY
     Dosage: 5-10MG, PRN
     Route: 048

REACTIONS (1)
  - Application site pain [Not Recovered/Not Resolved]
